FAERS Safety Report 4431993-4 (Version None)
Quarter: 2004Q3

REPORT INFORMATION
  Report Type: 
  Country: None (occurrence: None)
  Receive Date: 20040818
  Receipt Date: 20040725
  Transmission Date: 20050211
  Serious: No
  Sender: FDA-Public Use
  Company Number: WAES 0407USA02282

PATIENT
  Sex: Male

DRUGS (1)
  1. TOP TRESADERM [Suspect]
     Indication: MEDICATION ERROR
     Dosage: OPHT
     Route: 047
     Dates: start: 20040725, end: 20040725

REACTIONS (4)
  - ACCIDENTAL EXPOSURE [None]
  - EYE IRRITATION [None]
  - EYE PAIN [None]
  - MEDICATION ERROR [None]
